FAERS Safety Report 17299182 (Version 3)
Quarter: 2022Q1

REPORT INFORMATION
  Report Type: Report from Study
  Country: US (occurrence: US)
  Receive Date: 20200121
  Receipt Date: 20220121
  Transmission Date: 20220423
  Serious: No
  Sender: FDA-Public Use
  Company Number: None

PATIENT
  Age: 72 Year
  Sex: Male

DRUGS (2)
  1. BEOVU [Suspect]
     Active Substance: BROLUCIZUMAB-DBLL
     Indication: Neovascular age-related macular degeneration
     Dosage: UNK, ONCE/SINGLE
     Route: 047
     Dates: start: 20200108
  2. EYLEA [Concomitant]
     Active Substance: AFLIBERCEPT
     Indication: Product used for unknown indication
     Dosage: UNK
     Route: 065
     Dates: start: 20210221

REACTIONS (1)
  - Eye pain [Recovered/Resolved]

NARRATIVE: CASE EVENT DATE: 20200108
